FAERS Safety Report 4346874-4 (Version None)
Quarter: 2004Q1

REPORT INFORMATION
  Report Type: 
  Country: None (occurrence: None)
  Receive Date: 20040325
  Receipt Date: 20040202
  Transmission Date: 20041129
  Serious: No
  Sender: FDA-Public Use
  Company Number: USA040258320

PATIENT
  Sex: Female

DRUGS (1)
  1. FORTEO [Suspect]
     Dates: start: 20040112, end: 20040202

REACTIONS (6)
  - ARTHRALGIA [None]
  - BED REST [None]
  - BONE PAIN [None]
  - MUSCLE SPASMS [None]
  - PAIN EXACERBATED [None]
  - SCREAMING [None]
